FAERS Safety Report 9719606 (Version 1)
Quarter: 2013Q4

REPORT INFORMATION
  Report Type: Spontaneous
  Country: US (occurrence: US)
  Receive Date: 20131128
  Receipt Date: 20131128
  Transmission Date: 20140711
  Serious: No
  Sender: FDA-Public Use
  Company Number: US-BIOGENIDEC-2013BI113560

PATIENT
  Sex: Female

DRUGS (7)
  1. AVONEX [Suspect]
     Indication: MULTIPLE SCLEROSIS
     Route: 030
  2. ASPIRIN EC [Concomitant]
  3. BENAZEPRIL HCL [Concomitant]
  4. BUPROPION HCL [Concomitant]
  5. CRESTOR [Concomitant]
  6. LORAZEPAM [Concomitant]
  7. METFORMIN HCL [Concomitant]

REACTIONS (3)
  - Injection site swelling [Unknown]
  - Injection site bruising [Unknown]
  - Injection site warmth [Unknown]
